FAERS Safety Report 4583691-4 (Version None)
Quarter: 2005Q1

REPORT INFORMATION
  Report Type: 
  Country: None (occurrence: None)
  Receive Date: 20050216
  Receipt Date: 20040618
  Transmission Date: 20050727
  Serious: Yes (Hospitalization, Other)
  Sender: FDA-Public Use
  Company Number: FR-NOVOPROD-237735

PATIENT
  Age: 27 Year
  Sex: Female
  Weight: 73 kg

DRUGS (7)
  1. NOVOSEVEN [Suspect]
     Indication: POSTPARTUM HAEMORRHAGE
     Dosage: TOTAL OF 4.8 MG
     Route: 042
     Dates: start: 20031230, end: 20031230
  2. SUFENTANIL CITRATE [Concomitant]
     Dosage: 250 UG, UNK
     Route: 042
     Dates: start: 20031230, end: 20031231
  3. DIPRIVAN [Concomitant]
     Dosage: 5 G, UNK
     Route: 042
     Dates: start: 20031231, end: 20031231
  4. TRASYLOL [Concomitant]
     Dosage: 500 IU PER HOUR
     Route: 042
     Dates: start: 20031230, end: 20031231
  5. TRASYLOL [Concomitant]
     Dosage: CONTINOUSLY IN 2 HOURS
  6. NALADOR [Concomitant]
     Dosage: 1500 UG, UNK
     Route: 042
     Dates: start: 20031230, end: 20031231
  7. AUGMENTIN '125' [Concomitant]
     Dosage: 6 G, UNK
     Route: 042
     Dates: start: 20031230, end: 20040101

REACTIONS (1)
  - PHLEBOTHROMBOSIS [None]
